FAERS Safety Report 16918846 (Version 1)
Quarter: 2019Q4

REPORT INFORMATION
  Report Type: Spontaneous
  Country: US (occurrence: US)
  Receive Date: 20191014
  Receipt Date: 20191014
  Transmission Date: 20200122
  Serious: Yes (Other)
  Sender: FDA-Public Use
  Company Number: None

PATIENT
  Age: 68 Year
  Sex: Male
  Weight: 60.48 kg

DRUGS (7)
  1. CAPECITABINE. [Suspect]
     Active Substance: CAPECITABINE
     Indication: COLON CANCER
     Route: 048
     Dates: start: 20190919
  2. WARFARIN [Concomitant]
     Active Substance: WARFARIN
  3. LIDOCAINE-PRILOCAINE [Concomitant]
     Active Substance: LIDOCAINE\PRILOCAINE
  4. ONDANSETRON [Concomitant]
     Active Substance: ONDANSETRON
  5. DEXAMETHASONE. [Concomitant]
     Active Substance: DEXAMETHASONE
  6. CAPECITABINE. [Suspect]
     Active Substance: CAPECITABINE
     Indication: COLON CANCER
     Route: 048
     Dates: start: 20190919
  7. BENDARYL [Concomitant]

REACTIONS (2)
  - Accidental overdose [None]
  - Loss of consciousness [None]

NARRATIVE: CASE EVENT DATE: 20191002
